FAERS Safety Report 21120411 (Version 1)
Quarter: 2022Q3

REPORT INFORMATION
  Report Type: Spontaneous
  Country: US (occurrence: US)
  Receive Date: 20220722
  Receipt Date: 20220722
  Transmission Date: 20221027
  Serious: Yes (Other)
  Sender: FDA-Public Use
  Company Number: US-AQUESTIVE THERAPEUTICS, INC.-2022AQU00031

PATIENT
  Age: 3 Year
  Sex: Male
  Weight: 13 kg

DRUGS (5)
  1. SYMPAZAN [Suspect]
     Active Substance: CLOBAZAM
     Indication: Seizure
     Dosage: 10 MG IN AM AND 15 MG IN PM
     Route: 048
     Dates: start: 20220701, end: 20220705
  2. SYMPAZAN [Suspect]
     Active Substance: CLOBAZAM
     Dosage: 10 MG IN AM AND 15 MG IN PM
     Route: 048
     Dates: start: 20220706
  3. EPIDIOLEX [Concomitant]
     Active Substance: CANNABIDIOL
  4. RUFINAMIDE [Concomitant]
     Active Substance: RUFINAMIDE
  5. NAYZILAM [Concomitant]
     Active Substance: MIDAZOLAM

REACTIONS (4)
  - Dyspnoea [Recovered/Resolved]
  - Increased viscosity of upper respiratory secretion [Recovered/Resolved]
  - Saliva altered [Recovered/Resolved]
  - Incorrect route of product administration [Not Recovered/Not Resolved]

NARRATIVE: CASE EVENT DATE: 20220701
